FAERS Safety Report 22014814 (Version 1)
Quarter: 2023Q1

REPORT INFORMATION
  Report Type: Spontaneous
  Country: CA (occurrence: None)
  Receive Date: 20230221
  Receipt Date: 20230221
  Transmission Date: 20230418
  Serious: Yes (Other)
  Sender: FDA-Public Use
  Company Number: CA-ROCHE-3287821

PATIENT
  Age: 64 Year
  Sex: Female

DRUGS (13)
  1. RITUXIMAB [Suspect]
     Active Substance: RITUXIMAB
     Indication: Rheumatoid arthritis
     Route: 041
  2. ACETAMINOPHEN [Concomitant]
     Active Substance: ACETAMINOPHEN
     Route: 048
  3. ASPIRIN [Concomitant]
     Active Substance: ASPIRIN
     Route: 065
  4. ALLOPURINOL [Concomitant]
     Active Substance: ALLOPURINOL
  5. ARAVA [Concomitant]
     Active Substance: LEFLUNOMIDE
  6. AVALIDE [Concomitant]
     Active Substance: HYDROCHLOROTHIAZIDE\IRBESARTAN
  7. GLICLAZIDE [Concomitant]
     Active Substance: GLICLAZIDE
  8. DIPHENHYDRAMINE HYDROCHLORIDE [Concomitant]
     Active Substance: DIPHENHYDRAMINE HYDROCHLORIDE
     Route: 048
  9. FOLIC ACID [Concomitant]
     Active Substance: FOLIC ACID
  10. GABAPENTIN [Concomitant]
     Active Substance: GABAPENTIN
  11. HYDROMORPHONE [Concomitant]
     Active Substance: HYDROMORPHONE
  12. HYDROXYCHLOROQUINE [Concomitant]
     Active Substance: HYDROXYCHLOROQUINE
  13. INSULIN NOS [Concomitant]
     Active Substance: INSULIN NOS

REACTIONS (5)
  - Arthralgia [Unknown]
  - Back pain [Unknown]
  - Cerebrovascular accident [Unknown]
  - Pericardial effusion [Unknown]
  - Pneumonia [Unknown]
